FAERS Safety Report 19275016 (Version 1)
Quarter: 2021Q2

REPORT INFORMATION
  Report Type: Report from Study
  Country: BR (occurrence: BR)
  Receive Date: 20210519
  Receipt Date: 20210519
  Transmission Date: 20210717
  Serious: Yes (Other)
  Sender: FDA-Public Use
  Company Number: BR-TAKEDA-2021TUS030585

PATIENT
  Sex: Male

DRUGS (2)
  1. HEMO?8R [Suspect]
     Active Substance: ANTIHEMOPHILIC FACTOR, HUMAN RECOMBINANT
     Indication: FACTOR VIII DEFICIENCY
     Dosage: 250 INTERNATIONAL UNIT, 3/WEEK
     Route: 042
  2. HEMO?8R [Suspect]
     Active Substance: ANTIHEMOPHILIC FACTOR, HUMAN RECOMBINANT
     Dosage: 500 INTERNATIONAL UNIT, 3/WEEK
     Route: 042
     Dates: start: 20170125

REACTIONS (7)
  - Subdural haemorrhage [Unknown]
  - Vein disorder [Unknown]
  - Skin discolouration [Unknown]
  - Fall [Unknown]
  - Haemarthrosis [Unknown]
  - Brain oedema [Unknown]
  - Hydrocephalus [Unknown]

NARRATIVE: CASE EVENT DATE: 2017
